FAERS Safety Report 19361224 (Version 3)
Quarter: 2022Q2

REPORT INFORMATION
  Report Type: Report from Study
  Country: CA (occurrence: CA)
  Receive Date: 20210603
  Receipt Date: 20220510
  Transmission Date: 20220721
  Serious: Yes (Other)
  Sender: FDA-Public Use
  Company Number: CA-CELLTRION INC.-2021CA007317

PATIENT

DRUGS (5)
  1. TRUXIMA [Suspect]
     Active Substance: RITUXIMAB-ABBS
     Indication: Rheumatoid arthritis
     Dosage: 1000 MG
     Route: 042
  2. TRUXIMA [Suspect]
     Active Substance: RITUXIMAB-ABBS
     Dosage: 1000 MG
     Route: 042
     Dates: start: 20210507, end: 20211223
  3. MELATONIN [Concomitant]
     Active Substance: MELATONIN
  4. PERINDOPRIL [Concomitant]
     Active Substance: PERINDOPRIL
  5. VITAMIN D NOS [Concomitant]
     Active Substance: VITAMIN D NOS
     Dosage: UNK

REACTIONS (4)
  - Nephrolithiasis [Unknown]
  - Pollakiuria [Recovered/Resolved]
  - Umbilical hernia [Unknown]
  - Therapy change [Unknown]

NARRATIVE: CASE EVENT DATE: 20210507
